FAERS Safety Report 21626741 (Version 1)
Quarter: 2022Q4

REPORT INFORMATION
  Report Type: Other
  Country: None (occurrence: CN)
  Receive Date: 20221122
  Receipt Date: 20221122
  Transmission Date: 20230113
  Serious: Yes (Hospitalization, Other)
  Sender: FDA-Public Use
  Company Number: CN-Ajanta Pharma USA Inc.-2135142

PATIENT
  Age: 3 Year
  Sex: Male

DRUGS (6)
  1. LAMOTRIGINE [Suspect]
     Active Substance: LAMOTRIGINE
     Indication: Status epilepticus
  2. VALPROATE SODIUM [Suspect]
     Active Substance: VALPROATE SODIUM
  3. CLONAZEPAM [Concomitant]
     Active Substance: CLONAZEPAM
  4. LEVETIRACETAM [Concomitant]
     Active Substance: LEVETIRACETAM
  5. TOPIRAMATE [Concomitant]
     Active Substance: TOPIRAMATE
  6. NITRAZEPAM [Concomitant]
     Active Substance: NITRAZEPAM

REACTIONS (6)
  - Acute hepatic failure [Recovered/Resolved]
  - Hepatic encephalopathy [Recovered/Resolved]
  - Prescribed overdose [Recovered/Resolved]
  - Seizure [Unknown]
  - Pyrexia [Unknown]
  - Drug interaction [Recovered/Resolved]
